FAERS Safety Report 22295037 (Version 1)
Quarter: 2023Q2

REPORT INFORMATION
  Report Type: Spontaneous
  Country: US (occurrence: None)
  Receive Date: 20230505
  Receipt Date: 20230505
  Transmission Date: 20230722
  Serious: Yes (Death)
  Sender: FDA-Public Use
  Company Number: None

PATIENT
  Age: 78 Year
  Sex: Female

DRUGS (1)
  1. LENALIDOMIDE [Suspect]
     Active Substance: LENALIDOMIDE
     Indication: Plasma cell myeloma
     Dosage: 15MG QD ORAL?
     Route: 048
     Dates: start: 20210421, end: 20230503

REACTIONS (12)
  - Abdominal pain [None]
  - Nausea [None]
  - Vomiting [None]
  - Hyperglycaemia [None]
  - Lactic acidosis [None]
  - Incarcerated parastomal hernia [None]
  - Intestinal obstruction [None]
  - Pneumatosis intestinalis [None]
  - Shock [None]
  - Haemoglobin decreased [None]
  - Haemodynamic instability [None]
  - Acute myocardial infarction [None]

NARRATIVE: CASE EVENT DATE: 20230503
